FAERS Safety Report 4685067-8 (Version None)
Quarter: 2005Q2

REPORT INFORMATION
  Report Type: 
  Country: None (occurrence: None)
  Receive Date: 20050531
  Receipt Date: 20050412
  Transmission Date: 20051028
  Serious: Yes (Hospitalization)
  Sender: FDA-Public Use
  Company Number: WAES 0504USA01750

PATIENT
  Sex: 0

DRUGS (2)
  1. ZETIA [Suspect]
     Dosage: 10M G/DAILY/PO
     Route: 048
  2. NIACIN [Concomitant]

REACTIONS (1)
  - BLOOD CREATINE PHOSPHOKINASE INCREASED [None]
